FAERS Safety Report 23184685 (Version 1)
Quarter: 2023Q4

REPORT INFORMATION
  Report Type: Spontaneous
  Country: RU (occurrence: None)
  Receive Date: 20231115
  Receipt Date: 20231115
  Transmission Date: 20240110
  Serious: Yes (Other)
  Sender: FDA-Public Use
  Company Number: RU-ROCHE-3452973

PATIENT
  Age: 69 Year
  Sex: Female

DRUGS (3)
  1. TRASTUZUMAB [Suspect]
     Active Substance: TRASTUZUMAB
     Indication: Breast cancer
     Dosage: (LOADING DOSE OF 8 MG/KG)
     Route: 065
     Dates: start: 202104
  2. PERTUZUMAB [Suspect]
     Active Substance: PERTUZUMAB
     Indication: Breast cancer
     Dosage: (LOADING DOSE OF 840 MG), 21-DAY CYCLE.
     Route: 065
     Dates: start: 202104
  3. DOCETAXEL [Suspect]
     Active Substance: DOCETAXEL\DOCETAXEL ANHYDROUS
     Indication: Breast cancer
     Dosage: SIX CYCLES
     Route: 065

REACTIONS (5)
  - Neutropenia [Unknown]
  - Diarrhoea [Unknown]
  - Nausea [Unknown]
  - Lacrimation increased [Unknown]
  - Rhinitis [Unknown]
